APPROVED DRUG PRODUCT: CLOMIPHENE CITRATE
Active Ingredient: CLOMIPHENE CITRATE
Strength: 50MG
Dosage Form/Route: TABLET;ORAL
Application: A216545 | Product #001 | TE Code: AB
Applicant: RUBICON RESEARCH PRIVATE LTD
Approved: Nov 12, 2024 | RLD: No | RS: No | Type: RX